FAERS Safety Report 22026244 (Version 1)
Quarter: 2023Q1

REPORT INFORMATION
  Report Type: Spontaneous
  Country: US (occurrence: None)
  Receive Date: 20230223
  Receipt Date: 20230223
  Transmission Date: 20230418
  Serious: No
  Sender: FDA-Public Use
  Company Number: US-ROCHE-3164865

PATIENT
  Sex: Female

DRUGS (1)
  1. XOLAIR [Suspect]
     Active Substance: OMALIZUMAB
     Indication: Urticaria
     Route: 065

REACTIONS (5)
  - Arthralgia [Unknown]
  - Paraesthesia [Unknown]
  - Dysphonia [Unknown]
  - Malaise [Unknown]
  - Hypoaesthesia [Unknown]
